FAERS Safety Report 22119900 (Version 1)
Quarter: 2023Q1

REPORT INFORMATION
  Report Type: Report from Study
  Country: AU (occurrence: AU)
  Receive Date: 20230321
  Receipt Date: 20230321
  Transmission Date: 20230417
  Serious: Yes (Life-Threatening, Hospitalization)
  Sender: FDA-Public Use
  Company Number: AU-002147023-NVSC2023AU062110

PATIENT
  Age: 76 Year
  Sex: Female
  Weight: 82.8 kg

DRUGS (3)
  1. TISAGENLECLEUCEL [Suspect]
     Active Substance: TISAGENLECLEUCEL
     Indication: Mantle cell lymphoma
     Dosage: UNK
     Route: 065
     Dates: start: 202012
  2. BORTEZOMIB [Concomitant]
     Active Substance: BORTEZOMIB
     Indication: Product used for unknown indication
     Dosage: 2.4 MG, DAILY, DAY 1, 8, 15, 22 OF EVERY 35 DAYS
     Route: 058
     Dates: start: 20230130
  3. LENALIDOMIDE [Concomitant]
     Active Substance: LENALIDOMIDE
     Indication: Product used for unknown indication
     Dosage: 15 MG, DAILY, DAY 1-21 OF EVERY 35 DAYS
     Route: 048

REACTIONS (2)
  - Paraproteinaemia [Recovering/Resolving]
  - Delirium [Recovering/Resolving]

NARRATIVE: CASE EVENT DATE: 20221222
